FAERS Safety Report 7270120-5 (Version None)
Quarter: 2011Q1

REPORT INFORMATION
  Report Type: 
  Country: None (occurrence: None)
  Receive Date: 20110125
  Receipt Date: 20110111
  Transmission Date: 20110831
  Serious: Yes (Death, Hospitalization)
  Sender: FDA-Public Use
  Company Number: JP-2010-3014

PATIENT
  Age: 88 Year
  Sex: Male

DRUGS (8)
  1. SENNOSIDE [Concomitant]
  2. TAMSULOSIN HCL [Concomitant]
  3. HUSTAZOL [Concomitant]
  4. MUCOSIL-10 [Concomitant]
  5. NAVELBINE [Suspect]
     Indication: NON-SMALL CELL LUNG CANCER
     Dosage: 38 MG QD IV
     Route: 042
     Dates: start: 20101029, end: 20101105
  6. NAVELBINE [Suspect]
     Indication: NON-SMALL CELL LUNG CANCER
     Dosage: 31 MG IV
     Route: 042
     Dates: start: 20101122, end: 20101129
  7. HOKUNALIN [Concomitant]
  8. THEOLONG [Concomitant]

REACTIONS (22)
  - NEUTROPHIL COUNT INCREASED [None]
  - RED BLOOD CELL COUNT DECREASED [None]
  - ASPARTATE AMINOTRANSFERASE INCREASED [None]
  - BLOOD CALCIUM DECREASED [None]
  - BLOOD SODIUM DECREASED [None]
  - PYREXIA [None]
  - BLOOD ALKALINE PHOSPHATASE INCREASED [None]
  - C-REACTIVE PROTEIN INCREASED [None]
  - RESPIRATORY FAILURE [None]
  - PROTHROMBIN TIME PROLONGED [None]
  - HAEMATOCRIT DECREASED [None]
  - HAEMOGLOBIN DECREASED [None]
  - SURFACTANT PROTEIN INCREASED [None]
  - BLOOD CHLORIDE DECREASED [None]
  - BLOOD LACTATE DEHYDROGENASE INCREASED [None]
  - ALANINE AMINOTRANSFERASE INCREASED [None]
  - FIBRIN DEGRADATION PRODUCTS INCREASED [None]
  - WHITE BLOOD CELL COUNT INCREASED [None]
  - DECREASED APPETITE [None]
  - BLOOD FIBRINOGEN INCREASED [None]
  - INTERSTITIAL LUNG DISEASE [None]
  - BLOOD UREA INCREASED [None]
